FAERS Safety Report 17536311 (Version 1)
Quarter: 2020Q1

REPORT INFORMATION
  Report Type: Spontaneous
  Country: FR (occurrence: FR)
  Receive Date: 20200313
  Receipt Date: 20200313
  Transmission Date: 20200409
  Serious: Yes (Hospitalization)
  Sender: FDA-Public Use
  Company Number: FR-TEVA-2020-FR-1199863

PATIENT
  Age: 69 Year
  Sex: Female

DRUGS (8)
  1. LYRICA [Concomitant]
     Active Substance: PREGABALIN
     Route: 048
  2. CEFAZOLINE [Suspect]
     Active Substance: CEFAZOLIN SODIUM
     Indication: BACTERAEMIA
     Dosage: 2 GM
     Route: 042
     Dates: start: 20191225, end: 20200107
  3. LEVOFLOXACINE [Concomitant]
     Active Substance: LEVOFLOXACIN
     Route: 048
     Dates: start: 20200114
  4. OFLOXACINE [Suspect]
     Active Substance: OFLOXACIN
     Route: 042
     Dates: start: 20200107, end: 20200219
  5. PARACETAMOL [Concomitant]
     Active Substance: ACETAMINOPHEN
     Dosage: 2 DOSAGE FORMS
     Route: 048
  6. OFLOXACINE [Suspect]
     Active Substance: OFLOXACIN
     Indication: BACTERAEMIA
     Dosage: 2 GM
     Route: 042
     Dates: start: 20191229, end: 20200106
  7. VOLTARENE [Concomitant]
     Dosage: 2X / D
     Route: 048
  8. FOSFOMYCINE [Concomitant]
     Active Substance: FOSFOMYCIN
     Dosage: 750 MG
     Route: 048
     Dates: start: 20200109

REACTIONS (1)
  - Hypokalaemia [Recovered/Resolved]

NARRATIVE: CASE EVENT DATE: 20200106
